FAERS Safety Report 25682036 (Version 1)
Quarter: 2025Q3

REPORT INFORMATION
  Report Type: Report from Study
  Country: AR (occurrence: AR)
  Receive Date: 20250814
  Receipt Date: 20250814
  Transmission Date: 20251020
  Serious: Yes (Other)
  Sender: NOVO NORDISK
  Company Number: AR-NOVOPROD-1496545

PATIENT
  Age: 9 Year
  Sex: Female

DRUGS (1)
  1. NORDITROPIN [Suspect]
     Active Substance: SOMATROPIN
     Indication: Growth hormone deficiency
     Dosage: 0.9 MG, QD
     Dates: start: 20241028, end: 202505

REACTIONS (2)
  - Cartilage hypertrophy [Recovering/Resolving]
  - Knee deformity [Recovering/Resolving]

NARRATIVE: CASE EVENT DATE: 20250501
